FAERS Safety Report 26078020 (Version 1)
Quarter: 2025Q4

REPORT INFORMATION
  Report Type: Spontaneous
  Country: EU (occurrence: EU)
  Receive Date: 20251122
  Receipt Date: 20251122
  Transmission Date: 20260117
  Serious: Yes (Other)
  Sender: MICRO LABS LIMITED
  Company Number: None

PATIENT
  Age: 59 Year
  Sex: Female
  Weight: 73 kg

DRUGS (2)
  1. AMOXICILLIN TRIHYDRATE [Suspect]
     Active Substance: AMOXICILLIN
     Indication: Antibiotic prophylaxis
     Dosage: 3X1 TABLET, DISCONTINUED AFTER THE SECOND DOSE IN CONSULTATION WITH A PHYSICIAN
     Route: 048
     Dates: start: 20251104, end: 20251104
  2. CANDESARTAN CILEXETIL [Concomitant]
     Active Substance: CANDESARTAN CILEXETIL
     Indication: Hypertension
     Dosage: 2 MG/DAY

REACTIONS (1)
  - Blood pressure increased [Recovered/Resolved]

NARRATIVE: CASE EVENT DATE: 20251104
